FAERS Safety Report 8387563 (Version 2)
Quarter: 2013Q1

REPORT INFORMATION
  Report Type: Report from Study
  Country: US (occurrence: US)
  Receive Date: 20120202
  Receipt Date: 20130205
  Transmission Date: 20140127
  Serious: Yes (Other)
  Sender: FDA-Public Use
  Company Number: US-RB-028382-11

PATIENT
  Age: 32 Year
  Sex: Female
  Weight: 49 kg

DRUGS (3)
  1. SUBOXONE TABLETS [Suspect]
     Indication: DRUG DEPENDENCE
     Route: 060
     Dates: start: 2010, end: 2011
  2. SUBOXONE TABLETS [Suspect]
     Route: 060
     Dates: start: 2011, end: 201105
  3. SUBUTEX [Suspect]
     Indication: DRUG DEPENDENCE
     Route: 060
     Dates: start: 201105, end: 20111112

REACTIONS (5)
  - Underdose [Not Recovered/Not Resolved]
  - Wrong technique in drug usage process [Not Recovered/Not Resolved]
  - Exposure during pregnancy [Recovered/Resolved]
  - Labour induction [Recovered/Resolved]
  - Premature delivery [Recovered/Resolved]
